FAERS Safety Report 15352019 (Version 1)
Quarter: 2018Q3

REPORT INFORMATION
  Report Type: Report from Study
  Country: ES (occurrence: ES)
  Receive Date: 20180905
  Receipt Date: 20180905
  Transmission Date: 20181010
  Serious: Yes (Death, Hospitalization)
  Sender: FDA-Public Use
  Company Number: ES-PFIZER INC-2018354918

PATIENT
  Age: 75 Year
  Sex: Female

DRUGS (5)
  1. ENOXAPARIN [Concomitant]
     Active Substance: ENOXAPARIN
     Dates: start: 20170825, end: 20180116
  2. SIMVASTATIN. [Concomitant]
     Active Substance: SIMVASTATIN
     Dates: start: 20161202, end: 20180116
  3. FUROSEMIDE. [Suspect]
     Active Substance: FUROSEMIDE
     Dosage: 1X/DAY (1?0?0)
     Dates: start: 20170829, end: 20180116
  4. EPLERENONE. [Suspect]
     Active Substance: EPLERENONE
     Dosage: UNK
     Dates: start: 20170829, end: 20180112
  5. LEVOTHYROXINE. [Concomitant]
     Active Substance: LEVOTHYROXINE
     Dosage: UNK
     Dates: start: 20161202, end: 20180116

REACTIONS (2)
  - Hyperkalaemia [Fatal]
  - Acute kidney injury [Fatal]

NARRATIVE: CASE EVENT DATE: 20180111
